FAERS Safety Report 12588388 (Version 1)
Quarter: 2016Q3

REPORT INFORMATION
  Report Type: Spontaneous
  Country: US (occurrence: US)
  Receive Date: 20160725
  Receipt Date: 20160725
  Transmission Date: 20161109
  Serious: No
  Sender: FDA-Public Use
  Company Number: US-JNJFOC-20160521847

PATIENT
  Age: 6 Year
  Sex: Female

DRUGS (2)
  1. ZYRTEC [Suspect]
     Active Substance: CETIRIZINE HYDROCHLORIDE
     Indication: SEASONAL ALLERGY
     Route: 065
  2. ZYRTEC [Suspect]
     Active Substance: CETIRIZINE HYDROCHLORIDE
     Route: 065

REACTIONS (6)
  - Eating disorder [Recovered/Resolved]
  - Sleep terror [Recovered/Resolved]
  - Disturbance in social behaviour [Recovered/Resolved]
  - Hyperhidrosis [Recovered/Resolved]
  - Attention-seeking behaviour [Recovered/Resolved]
  - Aggression [Recovered/Resolved]
